FAERS Safety Report 13059247 (Version 1)
Quarter: 2016Q4

REPORT INFORMATION
  Report Type: Spontaneous
  Country: US (occurrence: US)
  Receive Date: 20161223
  Receipt Date: 20161223
  Transmission Date: 20170207
  Serious: No
  Sender: FDA-Public Use
  Company Number: US-BAUSCH-BL-2016-022533

PATIENT
  Age: 10 Year
  Sex: Male

DRUGS (4)
  1. XENAZINE [Suspect]
     Active Substance: TETRABENAZINE
     Dosage: 12.5 MG HALF TABLET TWICE DAILY ON WEEK TWO
     Route: 048
  2. XENAZINE [Suspect]
     Active Substance: TETRABENAZINE
     Indication: TOURETTE^S DISORDER
     Dosage: 12.5 MG HALF TABLET ONCE DAILY ON WEEK ONE
     Route: 048
     Dates: start: 20160818
  3. XENAZINE [Suspect]
     Active Substance: TETRABENAZINE
     Dosage: 12.5 MG ONE TABLET IN THE MORNING AND 12.5 MG HALF TABLET IN THE EVENING ON WEEK THREE
     Route: 048
  4. XENAZINE [Suspect]
     Active Substance: TETRABENAZINE
     Dosage: 12.5 MG ONE TABLET TWICE DAILY.
     Route: 048

REACTIONS (5)
  - Restlessness [Unknown]
  - Off label use [Unknown]
  - Drug administration error [Unknown]
  - Anxiety [Unknown]
  - Nausea [Unknown]

NARRATIVE: CASE EVENT DATE: 20160906
